FAERS Safety Report 14123895 (Version 1)
Quarter: 2017Q4

REPORT INFORMATION
  Report Type: Spontaneous
  Country: US (occurrence: None)
  Receive Date: 20171025
  Receipt Date: 20171025
  Transmission Date: 20180321
  Serious: No
  Sender: FDA-Public Use
  Company Number: None

PATIENT

DRUGS (2)
  1. SCOPOLAMINE [Suspect]
     Active Substance: SCOPOLAMINE
     Dosage: 4 PATCHES?STRENGTG 1 MG 3 DAYS
     Route: 061
  2. TRANSDERM SCOP [Suspect]
     Active Substance: SCOPOLAMINE
     Dosage: 4 PATCHES
     Route: 061

REACTIONS (1)
  - Product label confusion [None]
